FAERS Safety Report 4730427-X (Version None)
Quarter: 2005Q3

REPORT INFORMATION
  Report Type: 
  Country: None (occurrence: None)
  Receive Date: 20050801
  Receipt Date: 20050725
  Transmission Date: 20060218
  Serious: Yes (Other)
  Sender: FDA-Public Use
  Company Number: PHNR2005AU01160

PATIENT
  Age: 73 Year
  Sex: Female

DRUGS (3)
  1. CLOZARIL [Suspect]
     Dosage: 125 MG, DAILY
     Route: 048
     Dates: start: 20041231, end: 20050112
  2. OLANZAPINE [Concomitant]
     Dosage: 10 MG, DAILY
  3. CITALOPRAM HYDROBROMIDE [Concomitant]
     Dosage: 20 MG, DAILY
     Route: 048

REACTIONS (4)
  - CHEST PAIN [None]
  - ECHOCARDIOGRAM ABNORMAL [None]
  - INFLUENZA LIKE ILLNESS [None]
  - TROPONIN INCREASED [None]
